FAERS Safety Report 9535042 (Version 1)
Quarter: 2013Q3

REPORT INFORMATION
  Report Type: Spontaneous
  Country: FR (occurrence: FR)
  Receive Date: 20130918
  Receipt Date: 20130918
  Transmission Date: 20140515
  Serious: Yes (Hospitalization)
  Sender: FDA-Public Use
  Company Number: FR-B.I. PHARMACEUTICALS,INC./RIDGEFIELD-2013-FF-02285FF

PATIENT
  Sex: Male

DRUGS (3)
  1. TWYNSTA [Suspect]
     Route: 048
     Dates: end: 20130817
  2. ZYLORIC [Suspect]
     Route: 048
     Dates: start: 201304, end: 20130711
  3. INEGY [Suspect]
     Route: 048
     Dates: end: 20130817

REACTIONS (6)
  - Pruritus [Recovered/Resolved]
  - Rash morbilliform [Recovered/Resolved]
  - General physical health deterioration [Recovered/Resolved]
  - Eosinophilia [Recovered/Resolved]
  - Lymphopenia [Recovered/Resolved]
  - Drug reaction with eosinophilia and systemic symptoms [Recovered/Resolved]
